FAERS Safety Report 9322152 (Version 2)
Quarter: 2013Q2

REPORT INFORMATION
  Report Type: Spontaneous
  Country: BR (occurrence: BR)
  Receive Date: 20130531
  Receipt Date: 20130628
  Transmission Date: 20140414
  Serious: Yes (Other)
  Sender: FDA-Public Use
  Company Number: BR-ABBOTT-13P-020-1096472-00

PATIENT
  Age: 50 Year
  Sex: Female
  Weight: 70 kg

DRUGS (7)
  1. HUMIRA [Suspect]
     Indication: PSORIASIS
     Dosage: WEEK 0
     Route: 058
  2. HUMIRA [Suspect]
     Dosage: WEEK 1
     Route: 048
     Dates: start: 20130125
  3. FLUOXETIN [Concomitant]
     Indication: DEPRESSION
     Route: 048
     Dates: start: 2003
  4. CITALOPRAM [Concomitant]
     Indication: DEPRESSION
  5. QUETIAPINE FUMARATE [Concomitant]
     Indication: BIPOLAR DISORDER
     Route: 048
     Dates: start: 201204
  6. HISTAMIN [Concomitant]
     Indication: HYPERSENSITIVITY
     Route: 048
     Dates: start: 20130522
  7. UNKNOWN MEDICATION [Concomitant]
     Indication: PRODUCT USED FOR UNKNOWN INDICATION

REACTIONS (16)
  - Syncope [Unknown]
  - Headache [Not Recovered/Not Resolved]
  - Hypertension [Unknown]
  - Blood glucose increased [Unknown]
  - Ear infection [Not Recovered/Not Resolved]
  - Heart rate decreased [Not Recovered/Not Resolved]
  - External ear inflammation [Unknown]
  - Syncope [Unknown]
  - Syncope [Recovered/Resolved]
  - Asthenia [Unknown]
  - Hypotension [Unknown]
  - Dizziness [Not Recovered/Not Resolved]
  - Fatigue [Not Recovered/Not Resolved]
  - Pallor [Not Recovered/Not Resolved]
  - Haematochezia [Unknown]
  - Weight decreased [Unknown]
